FAERS Safety Report 9431078 (Version 1)
Quarter: 2013Q3

REPORT INFORMATION
  Report Type: Spontaneous
  Country: US (occurrence: US)
  Receive Date: 20130730
  Receipt Date: 20130730
  Transmission Date: 20140515
  Serious: No
  Sender: FDA-Public Use
  Company Number: US-BAYER-2013-090897

PATIENT
  Age: 50 Year
  Sex: Female
  Weight: 68 kg

DRUGS (1)
  1. ESTRADIOL HEMIHYDRATE (PATCH) [Suspect]
     Indication: HOT FLUSH
     Dosage: 0.05 MG/24HR, CONT
     Route: 062
     Dates: start: 20130711

REACTIONS (1)
  - Drug ineffective [Not Recovered/Not Resolved]
